FAERS Safety Report 5410071-1 (Version None)
Quarter: 2007Q3

REPORT INFORMATION
  Report Type: 
  Country: None (occurrence: None)
  Receive Date: 20070713
  Receipt Date: 20070606
  Transmission Date: 20080115
  Serious: No
  Sender: FDA-Public Use
  Company Number: 2007SP002125

PATIENT
  Age: 73 Year
  Sex: Female
  Weight: 43.0917 kg

DRUGS (11)
  1. LUNESTA [Suspect]
     Indication: INSOMNIA
     Dosage: 2 MG;HS;ORAL; 1 MG;1X;ORAL
     Route: 048
     Dates: start: 20070606, end: 20070606
  2. LUNESTA [Suspect]
     Indication: INSOMNIA
     Dosage: 2 MG;HS;ORAL; 1 MG;1X;ORAL
     Route: 048
     Dates: start: 20070606
  3. CYMBALTA [Concomitant]
  4. ZETIA [Concomitant]
  5. ATORVASTATIN CALCIUM [Concomitant]
  6. VICODIN [Concomitant]
  7. PEPCID [Concomitant]
  8. SENNA [Concomitant]
  9. XANAX [Concomitant]
  10. CALCIUM CHLORIDE [Concomitant]
  11. ROZEREM [Concomitant]

REACTIONS (1)
  - INITIAL INSOMNIA [None]
